FAERS Safety Report 20033994 (Version 1)
Quarter: 2021Q4

REPORT INFORMATION
  Report Type: Spontaneous
  Country: PL (occurrence: PL)
  Receive Date: 20211104
  Receipt Date: 20211104
  Transmission Date: 20220303
  Serious: Yes (Other)
  Sender: FDA-Public Use
  Company Number: PL-MYLANLABS-2021M1081047

PATIENT
  Age: 56 Year
  Sex: Male

DRUGS (6)
  1. FLUOROURACIL [Suspect]
     Active Substance: FLUOROURACIL
     Indication: Rectosigmoid cancer metastatic
     Dosage: RECEIVED CHEMOTHERAPY WITH FOLFOX4 REGIMEN COMPRISING OF..
     Route: 065
     Dates: start: 202001
  2. FLUOROURACIL [Suspect]
     Active Substance: FLUOROURACIL
     Indication: Metastases to liver
  3. OXALIPLATIN [Suspect]
     Active Substance: OXALIPLATIN
     Indication: Rectosigmoid cancer metastatic
     Dosage: UNK,
     Route: 065
  4. OXALIPLATIN [Suspect]
     Active Substance: OXALIPLATIN
     Indication: Metastases to liver
     Dosage: 65 MILLIGRAM/SQ. METER, CYCLE, RECEIVED CHEMOTHERAPY..
     Route: 065
     Dates: start: 202001
  5. LEUCOVORIN [Suspect]
     Active Substance: LEUCOVORIN
     Indication: Rectosigmoid cancer metastatic
     Dosage: RECEIVED CHEMOTHERAPY WITH FOLFOX4 REGIMEN COMPRISING OF F..
     Route: 065
     Dates: start: 202001
  6. LEUCOVORIN [Suspect]
     Active Substance: LEUCOVORIN
     Indication: Metastases to liver

REACTIONS (1)
  - Polyneuropathy [Unknown]

NARRATIVE: CASE EVENT DATE: 20200101
